FAERS Safety Report 24013595 (Version 3)
Quarter: 2024Q3

REPORT INFORMATION
  Report Type: Spontaneous
  Country: BR (occurrence: BR)
  Receive Date: 20240626
  Receipt Date: 20240713
  Transmission Date: 20241016
  Serious: No
  Sender: CELLTRION
  Company Number: BR-CELLTRION INC.-2024BR015451

PATIENT

DRUGS (1)
  1. INFLIXIMAB [Suspect]
     Active Substance: INFLIXIMAB
     Indication: Product used for unknown indication
     Dosage: FIRST INFUSION
     Route: 064

REACTIONS (3)
  - Decreased appetite [Not Recovered/Not Resolved]
  - Weight gain poor [Not Recovered/Not Resolved]
  - Maternal exposure during breast feeding [Not Recovered/Not Resolved]
